FAERS Safety Report 8078332-8 (Version None)
Quarter: 2012Q1

REPORT INFORMATION
  Report Type: 
  Country: None (occurrence: None)
  Receive Date: 20120123
  Receipt Date: 20120105
  Transmission Date: 20120608
  Serious: Yes (Other)
  Sender: FDA-Public Use
  Company Number: AUR-APU-2012-00202

PATIENT
  Sex: Female

DRUGS (6)
  1. CALCIUM+VITAMIN D (CALCIUM D3 /01483701/) [Concomitant]
  2. SIMVASTATIN [Concomitant]
  3. ALENDRONIC ACID (ALENDRONIC ACID) [Suspect]
     Indication: OSTEOPOROSIS
     Dosage: (1 IN 1 WK),ORAL
     Route: 048
  4. TRICOR [Concomitant]
  5. TRAMADOL HCL [Concomitant]
  6. LISINOPRIL [Concomitant]

REACTIONS (2)
  - OSTEOPOROSIS [None]
  - DRUG INEFFECTIVE [None]
